FAERS Safety Report 8984124 (Version 1)
Quarter: 2012Q4

REPORT INFORMATION
  Report Type: Spontaneous
  Country: US (occurrence: None)
  Receive Date: 20121219
  Receipt Date: 20121219
  Transmission Date: 20130627
  Serious: No
  Sender: FDA-Public Use
  Company Number: None

PATIENT

DRUGS (1)
  1. FENTANYL PATCH FENTANYL [Suspect]
     Dosage: Patch  topical
     Route: 061

REACTIONS (4)
  - Poor quality drug administered [None]
  - Incorrect route of drug administration [None]
  - Loss of consciousness [None]
  - Medication error [None]
